FAERS Safety Report 15526454 (Version 1)
Quarter: 2018Q4

REPORT INFORMATION
  Report Type: Spontaneous
  Country: MX (occurrence: MX)
  Receive Date: 20181018
  Receipt Date: 20181018
  Transmission Date: 20190205
  Serious: Yes (Life-Threatening, Other)
  Sender: FDA-Public Use
  Company Number: MX-BAUSCH-BL-2018-028447

PATIENT
  Age: 19 Year
  Sex: Male

DRUGS (6)
  1. SODIUM CARBOXYMETHYLCELLULOSE [Concomitant]
     Active Substance: CARBOXYMETHYLCELLULOSE SODIUM
     Indication: PRODUCT USED FOR UNKNOWN INDICATION
  2. FLUOROMETHOLONE ACETATE [Concomitant]
     Active Substance: FLUOROMETHOLONE ACETATE
     Indication: PRODUCT USED FOR UNKNOWN INDICATION
  3. RETINOIC ACID [Suspect]
     Active Substance: TRETINOIN
     Indication: ACNE
     Dosage: CHRONIC USE
     Route: 065
  4. GATIFLOXACIN. [Concomitant]
     Active Substance: GATIFLOXACIN
     Indication: PRODUCT USED FOR UNKNOWN INDICATION
  5. PREDNISOLONE ACETATE. [Suspect]
     Active Substance: PREDNISOLONE ACETATE
     Indication: CORNEAL FLAP COMPLICATION
     Route: 061
  6. PREDNISOLONE ACETATE. [Suspect]
     Active Substance: PREDNISOLONE ACETATE
     Indication: VISION BLURRED

REACTIONS (8)
  - Cataract subcapsular [Not Recovered/Not Resolved]
  - Corneal disorder [Unknown]
  - Suicide attempt [Unknown]
  - Ocular hypertension [Recovering/Resolving]
  - Depression [Unknown]
  - Optic neuropathy [Recovering/Resolving]
  - Keratopathy [Recovering/Resolving]
  - Intraocular pressure increased [Recovering/Resolving]
